FAERS Safety Report 13504056 (Version 1)
Quarter: 2017Q2

REPORT INFORMATION
  Report Type: Spontaneous
  Country: US (occurrence: US)
  Receive Date: 20170502
  Receipt Date: 20170502
  Transmission Date: 20170830
  Serious: Yes (Other)
  Sender: FDA-Public Use
  Company Number: None

PATIENT
  Age: 48 Year
  Sex: Female
  Weight: 81 kg

DRUGS (2)
  1. VITAMIN D [Concomitant]
     Active Substance: CHOLECALCIFEROL
  2. CYMBALTA [Suspect]
     Active Substance: DULOXETINE HYDROCHLORIDE
     Indication: DEPRESSION
     Dosage: ?          QUANTITY:1 CAPSULE(S);?
     Route: 048
     Dates: end: 20170501

REACTIONS (7)
  - Abdominal pain upper [None]
  - Drug dose omission [None]
  - Headache [None]
  - Vomiting [None]
  - Feeling abnormal [None]
  - Drug withdrawal syndrome [None]
  - Hyperhidrosis [None]

NARRATIVE: CASE EVENT DATE: 20170501
